FAERS Safety Report 5570008-1 (Version None)
Quarter: 2007Q4

REPORT INFORMATION
  Report Type: 
  Country: None (occurrence: None)
  Receive Date: 20071217
  Receipt Date: 20071205
  Transmission Date: 20080405
  Serious: Yes (Other)
  Sender: FDA-Public Use
  Company Number: GXKR2007CN01172

PATIENT
  Age: 37 Year
  Sex: Female

DRUGS (4)
  1. ITRACONAZOLE [Suspect]
     Indication: PULMONARY MYCOSIS
  2. VINDESINE(VINDESINE) [Suspect]
     Indication: ACUTE LYMPHOCYTIC LEUKAEMIA
  3. DEXAMETHASONE TAB [Concomitant]
  4. IDARUBICIN HCL [Concomitant]

REACTIONS (7)
  - ANAESTHESIA [None]
  - DRUG INTERACTION [None]
  - HAEMORRHAGE INTRACRANIAL [None]
  - ILEUS PARALYTIC [None]
  - LOWER RESPIRATORY TRACT INFECTION [None]
  - NEUROTOXICITY [None]
  - SENSORY LOSS [None]
